FAERS Safety Report 9633329 (Version 1)
Quarter: 2013Q4

REPORT INFORMATION
  Report Type: Spontaneous
  Country: US (occurrence: US)
  Receive Date: 20131021
  Receipt Date: 20131021
  Transmission Date: 20140711
  Serious: No
  Sender: FDA-Public Use
  Company Number: US-B.I. PHARMACEUTICALS,INC./RIDGEFIELD-2013-BI-31856BP

PATIENT
  Age: 75 Year
  Sex: Male

DRUGS (5)
  1. AGGRENOX [Suspect]
     Indication: TRANSIENT ISCHAEMIC ATTACK
     Dosage: STRENGTH: 25 MG / 200 MG; DAILY DOSE: 50 MG / 400 MG
     Route: 048
     Dates: start: 201308
  2. THYROXINE [Concomitant]
     Indication: HYPOTHYROIDISM
     Dosage: 5 MG
     Route: 048
     Dates: start: 2011
  3. VIMPAT [Concomitant]
     Indication: CONVULSION
     Dosage: 100 MG
     Route: 048
     Dates: start: 2011
  4. GABAPENTIN [Concomitant]
     Indication: CONVULSION
     Dosage: 600 MG
     Route: 048
     Dates: start: 2012
  5. LAMICTAL [Concomitant]
     Indication: CONVULSION
     Dosage: 300 MG
     Route: 048
     Dates: start: 2000

REACTIONS (3)
  - Confusional state [Not Recovered/Not Resolved]
  - Balance disorder [Not Recovered/Not Resolved]
  - Dyskinesia [Not Recovered/Not Resolved]
